FAERS Safety Report 4414785-1 (Version None)
Quarter: 2004Q3

REPORT INFORMATION
  Report Type: 
  Country: None (occurrence: None)
  Receive Date: 20040804
  Receipt Date: 20031001
  Transmission Date: 20050211
  Serious: No
  Sender: FDA-Public Use
  Company Number: US-BRISTOL-MYERS SQUIBB COMPANY-12398665

PATIENT
  Age: 69 Year
  Sex: Male
  Weight: 54 kg

DRUGS (7)
  1. GLUCOVANCE [Suspect]
     Indication: DIABETES MELLITUS
     Dosage: DURATION OF THERAPY:  ^6-8 MONTHS^
     Route: 048
  2. MULTI-VITAMIN [Concomitant]
  3. VITAMIN C [Concomitant]
  4. VITAMIN E [Concomitant]
  5. VITAMIN B COMPLEX CAP [Concomitant]
  6. SALMON OIL [Concomitant]
  7. ADVIL [Concomitant]

REACTIONS (1)
  - WEIGHT DECREASED [None]
